FAERS Safety Report 25134887 (Version 1)
Quarter: 2025Q1

REPORT INFORMATION
  Report Type: Spontaneous
  Country: US (occurrence: US)
  Receive Date: 20250328
  Receipt Date: 20250328
  Transmission Date: 20250409
  Serious: No
  Sender: SANOFI AVENTIS
  Company Number: US-SA-2025SA089481

PATIENT
  Age: 39 Year
  Sex: Female
  Weight: 67.73 kg

DRUGS (3)
  1. DUPIXENT [Suspect]
     Active Substance: DUPILUMAB
     Indication: Dermatitis atopic
     Dosage: 300MG QOW
     Route: 058
     Dates: end: 20250306
  2. DUPIXENT [Suspect]
     Active Substance: DUPILUMAB
     Indication: Arthritis
  3. OMEPRAZOLE [Concomitant]
     Active Substance: OMEPRAZOLE

REACTIONS (2)
  - Gastrointestinal disorder [Unknown]
  - Product use in unapproved indication [Unknown]
